FAERS Safety Report 10097437 (Version 1)
Quarter: 2014Q2

REPORT INFORMATION
  Report Type: Spontaneous
  Country: CN (occurrence: CN)
  Receive Date: 20140423
  Receipt Date: 20140423
  Transmission Date: 20141212
  Serious: Yes (Hospitalization, Other)
  Sender: FDA-Public Use
  Company Number: CN-BAXTER-2014BAX019076

PATIENT
  Age: 57 Year
  Sex: Male
  Weight: 50 kg

DRUGS (2)
  1. LOW CALCIUM PERITONEAL DIALYSIS SOLUTION ( LACTATE- G1.5%) [Suspect]
     Indication: RENAL FAILURE CHRONIC
     Route: 033
     Dates: start: 20100709, end: 20130728
  2. LOW CALCIUM PERITONEAL DIALYSIS SOLUTION ( LACTATE- G1.5%) [Suspect]
     Route: 033

REACTIONS (3)
  - Chills [Recovered/Resolved]
  - Temperature intolerance [Recovered/Resolved]
  - Peritonitis [Recovered/Resolved]
